FAERS Safety Report 9046435 (Version 1)
Quarter: 2013Q1

REPORT INFORMATION
  Report Type: Spontaneous
  Country: US (occurrence: None)
  Receive Date: 20130128
  Receipt Date: 20130128
  Transmission Date: 20140127
  Serious: Yes (Other)
  Sender: FDA-Public Use
  Company Number: None

PATIENT
  Age: 21 Year
  Sex: Female
  Weight: 62.6 kg

DRUGS (1)
  1. GIANVI [Suspect]
     Indication: ORAL CONTRACEPTION
     Dates: start: 20130107, end: 20130123

REACTIONS (1)
  - Deep vein thrombosis [None]
